FAERS Safety Report 6431847-8 (Version None)
Quarter: 2009Q4

REPORT INFORMATION
  Report Type: 
  Country: None (occurrence: None)
  Receive Date: 20091108
  Receipt Date: 20091030
  Transmission Date: 20100525
  Serious: Yes (Other)
  Sender: FDA-Public Use
  Company Number: PHHO2009CH12625

PATIENT
  Sex: Male

DRUGS (5)
  1. RAD 666 RAD+TAB [Suspect]
     Indication: RENAL TRANSPLANT
     Dosage: 1.5 G, QD
     Route: 048
     Dates: start: 20090120, end: 20091013
  2. SANDIMMUNE [Suspect]
     Indication: RENAL TRANSPLANT
     Dosage: UNK
     Route: 048
     Dates: start: 20081020
  3. MYFORTIC [Suspect]
     Indication: RENAL TRANSPLANT
     Dosage: 720 MG
     Route: 048
     Dates: start: 20081020, end: 20090120
  4. MYFORTIC [Suspect]
     Dosage: 1440 MG
     Route: 048
     Dates: start: 20091013
  5. SPIRICORT [Suspect]
     Indication: RENAL TRANSPLANT
     Dosage: 8.5 MG/DAILY
     Dates: start: 20091020

REACTIONS (3)
  - DRUG INEFFECTIVE [None]
  - KIDNEY TRANSPLANT REJECTION [None]
  - RENAL IMPAIRMENT [None]
